FAERS Safety Report 23116431 (Version 1)
Quarter: 2023Q4

REPORT INFORMATION
  Report Type: Spontaneous
  Country: US (occurrence: None)
  Receive Date: 20231026
  Receipt Date: 20231026
  Transmission Date: 20240109
  Serious: No
  Sender: FDA-Public Use
  Company Number: None

PATIENT
  Age: 71 Year
  Sex: Male

DRUGS (6)
  1. ADEMPAS [Suspect]
     Active Substance: RIOCIGUAT
     Indication: Pulmonary hypertension
     Dosage: FREQUENCY : TWICE A DAY;?
     Route: 048
     Dates: start: 20231004, end: 20231025
  2. SILDENAFIL [Concomitant]
  3. GABAPENTIN [Concomitant]
     Active Substance: GABAPENTIN
  4. VICTOZA [Concomitant]
  5. UPTRAVI [Concomitant]
  6. PLAVIX [Concomitant]

REACTIONS (10)
  - Feeling abnormal [None]
  - Fatigue [None]
  - Dyspnoea [None]
  - Hypotension [None]
  - Decreased activity [None]
  - Dizziness [None]
  - Distractibility [None]
  - Chest discomfort [None]
  - Abdominal discomfort [None]
  - Injection site discomfort [None]

NARRATIVE: CASE EVENT DATE: 20231025
